FAERS Safety Report 20519538 (Version 1)
Quarter: 2022Q1

REPORT INFORMATION
  Report Type: Spontaneous
  Country: US (occurrence: US)
  Receive Date: 20220225
  Receipt Date: 20220225
  Transmission Date: 20220424
  Serious: Yes (Other)
  Sender: FDA-Public Use
  Company Number: US-GLAXOSMITHKLINE-US2022GSK035620

PATIENT
  Sex: Male

DRUGS (2)
  1. ZANTAC [Suspect]
     Active Substance: RANITIDINE HYDROCHLORIDE
     Indication: Flatulence
     Dosage: UNKNOWN AT THIS TIME BOTH
     Route: 065
     Dates: start: 200001, end: 201912
  2. ZANTAC [Suspect]
     Active Substance: RANITIDINE HYDROCHLORIDE
     Indication: Flatulence
     Dosage: UNKNOWN AT THIS TIME BOTH
     Route: 065
     Dates: start: 200001, end: 201912

REACTIONS (2)
  - Colorectal cancer [Unknown]
  - Gastric cancer [Unknown]
